FAERS Safety Report 19606146 (Version 6)
Quarter: 2024Q4

REPORT INFORMATION
  Report Type: Spontaneous
  Country: CA (occurrence: CA)
  Receive Date: 20210723
  Receipt Date: 20241227
  Transmission Date: 20250115
  Serious: Yes (Other)
  Sender: ALEXION PHARMACEUTICALS
  Company Number: 2021A627494

PATIENT
  Age: 34 Year
  Weight: 81 kg

DRUGS (58)
  1. QUETIAPINE [Suspect]
     Active Substance: QUETIAPINE
     Indication: Product used for unknown indication
     Dosage: 1 DOSAGE FORM, QD
  2. QUETIAPINE [Suspect]
     Active Substance: QUETIAPINE
     Dosage: 100 MILLIGRAM, QD
  3. QUETIAPINE [Suspect]
     Active Substance: QUETIAPINE
     Dosage: 1 DOSAGE FORM, QD
  4. QUETIAPINE [Suspect]
     Active Substance: QUETIAPINE
     Dosage: UNK UNK, QD
  5. QUETIAPINE [Suspect]
     Active Substance: QUETIAPINE
     Dosage: 100 MILLIGRAM, QD
  6. QUETIAPINE [Suspect]
     Active Substance: QUETIAPINE
     Dosage: 1 DOSAGE FORM, QD
  7. QUETIAPINE [Suspect]
     Active Substance: QUETIAPINE
     Dosage: 1 DOSAGE FORM, QD
  8. QUETIAPINE [Suspect]
     Active Substance: QUETIAPINE
     Dosage: 100 MILLIGRAM, QD
  9. BENZOYL PEROXIDE\CLINDAMYCIN [Suspect]
     Active Substance: BENZOYL PEROXIDE\CLINDAMYCIN
     Indication: Product used for unknown indication
     Dosage: 1 DOSAGE FORM, QD
  10. BENZOYL PEROXIDE\CLINDAMYCIN [Suspect]
     Active Substance: BENZOYL PEROXIDE\CLINDAMYCIN
     Dosage: 1 DOSAGE FORM, QD
  11. BENZOYL PEROXIDE\CLINDAMYCIN [Suspect]
     Active Substance: BENZOYL PEROXIDE\CLINDAMYCIN
     Dosage: 1 DOSAGE FORM
     Route: 065
  12. BUPROPION [Suspect]
     Active Substance: BUPROPION
     Indication: Product used for unknown indication
     Dosage: 300 MILLIGRAM, QD
  13. BUPROPION [Suspect]
     Active Substance: BUPROPION
     Dosage: 300 MILLIGRAM, QD
     Route: 065
  14. BUPROPION [Suspect]
     Active Substance: BUPROPION
     Dosage: 300 MILLIGRAM, QD
  15. BUPROPION [Suspect]
     Active Substance: BUPROPION
     Dosage: 1 UNK, QD
     Route: 065
  16. BUPROPION [Suspect]
     Active Substance: BUPROPION
     Dosage: UNK
     Route: 065
  17. BUPROPION [Suspect]
     Active Substance: BUPROPION
     Dosage: 1 DOSAGE FORM
     Route: 065
  18. BUPROPION [Suspect]
     Active Substance: BUPROPION
     Dosage: 300 MILLIGRAM, QD
     Route: 065
  19. BUPROPION [Suspect]
     Active Substance: BUPROPION
     Dosage: 1 DOSAGE FORM, QD
     Route: 065
  20. BUPROPION [Suspect]
     Active Substance: BUPROPION
     Dosage: 300 MILLIGRAM, QD
  21. BUPROPION [Suspect]
     Active Substance: BUPROPION
     Dosage: UNK
     Route: 065
  22. BUPROPION HYDROBROMIDE [Suspect]
     Active Substance: BUPROPION HYDROBROMIDE
     Indication: Product used for unknown indication
     Dosage: 1 DOSAGE FORM, QD
  23. BUPROPION HYDROBROMIDE [Suspect]
     Active Substance: BUPROPION HYDROBROMIDE
     Dosage: 300 MILLIGRAM, QD
  24. BUPROPION HYDROBROMIDE [Suspect]
     Active Substance: BUPROPION HYDROBROMIDE
     Dosage: 300 MILLIGRAM, QD
  25. BUPROPION HYDROBROMIDE [Suspect]
     Active Substance: BUPROPION HYDROBROMIDE
     Dosage: UNK, QD
  26. CYMBALTA [Suspect]
     Active Substance: DULOXETINE HYDROCHLORIDE
     Indication: Product used for unknown indication
     Dosage: UNK
  27. CYMBALTA [Suspect]
     Active Substance: DULOXETINE HYDROCHLORIDE
     Dosage: 30 MILLIGRAM
     Route: 065
  28. CYMBALTA [Suspect]
     Active Substance: DULOXETINE HYDROCHLORIDE
     Dosage: UNK
     Route: 065
  29. CYMBALTA [Suspect]
     Active Substance: DULOXETINE HYDROCHLORIDE
     Dosage: 30 MILLIGRAM
     Route: 065
  30. CYMBALTA [Suspect]
     Active Substance: DULOXETINE HYDROCHLORIDE
     Dosage: 30 MILLIGRAM
  31. CYMBALTA [Suspect]
     Active Substance: DULOXETINE HYDROCHLORIDE
     Dosage: UNK
  32. DULOXETINE [Suspect]
     Active Substance: DULOXETINE
     Indication: Product used for unknown indication
     Dosage: 30 MILLIGRAM
     Route: 065
  33. ERYTHROMYCIN [Suspect]
     Active Substance: ERYTHROMYCIN
     Indication: Acne
     Dosage: 1 DOSAGE FORM, QD
     Route: 065
  34. ERYTHROMYCIN [Suspect]
     Active Substance: ERYTHROMYCIN
     Indication: Product used for unknown indication
     Dosage: 1 DOSAGE FORM, QD
     Route: 065
  35. ERYTHROMYCIN [Suspect]
     Active Substance: ERYTHROMYCIN
     Dosage: 1 DOSAGE FORM, QD
  36. ERYTHROMYCIN [Suspect]
     Active Substance: ERYTHROMYCIN
     Dosage: 1 DOSAGE FORM, QD
     Route: 065
  37. ERYTHROMYCIN [Suspect]
     Active Substance: ERYTHROMYCIN
     Dosage: 1 DOSAGE FORM, QD
     Route: 065
  38. ERYTHROMYCIN PROPIONATE [Suspect]
     Active Substance: ERYTHROMYCIN PROPIONATE
     Indication: Acne
     Dosage: 1 DOSAGE FORM
     Route: 065
  39. ERYTHROMYCIN PROPIONATE [Suspect]
     Active Substance: ERYTHROMYCIN PROPIONATE
     Dosage: UNK, QD
     Route: 065
  40. ERYTHROMYCIN\TRETINOIN [Suspect]
     Active Substance: ERYTHROMYCIN\TRETINOIN
     Indication: Acne
     Dosage: 1 DOSAGE FORM, QD
     Route: 065
  41. DULOXETINE [Suspect]
     Active Substance: DULOXETINE
     Indication: Product used for unknown indication
     Dosage: 30 MILLIGRAM
     Route: 065
  42. DULOXETINE [Suspect]
     Active Substance: DULOXETINE
     Dosage: UNK
     Route: 065
  43. DULOXETINE [Suspect]
     Active Substance: DULOXETINE
     Dosage: UNK
  44. DULOXETINE [Suspect]
     Active Substance: DULOXETINE
     Dosage: UNK
  45. DULOXETINE [Suspect]
     Active Substance: DULOXETINE
     Dosage: UNK
     Route: 065
  46. DULOXETINE [Suspect]
     Active Substance: DULOXETINE
     Dosage: UNK
     Route: 065
  47. DULOXETINE [Suspect]
     Active Substance: DULOXETINE
     Dosage: 30 MILLIGRAM
     Route: 065
  48. TRETINOIN [Suspect]
     Active Substance: TRETINOIN
     Indication: Acne
     Dosage: 1 DOSAGE FORM, QD
  49. TRETINOIN [Suspect]
     Active Substance: TRETINOIN
     Dosage: 1 DOSAGE FORM, QD
  50. TRETINOIN [Suspect]
     Active Substance: TRETINOIN
     Dosage: 1 DOSAGE FORM, QD
  51. WELLBUTRIN XL [Suspect]
     Active Substance: BUPROPION HYDROCHLORIDE
     Indication: Product used for unknown indication
     Dosage: 1 DOSAGE FORM, QD
     Route: 065
  52. WELLBUTRIN XL [Suspect]
     Active Substance: BUPROPION HYDROCHLORIDE
     Dosage: 300 MILLIGRAM, QD
     Route: 065
  53. WELLBUTRIN XL [Suspect]
     Active Substance: BUPROPION HYDROCHLORIDE
     Dosage: 1 DOSAGE FORM, QD
  54. WELLBUTRIN XL [Suspect]
     Active Substance: BUPROPION HYDROCHLORIDE
     Dosage: 1 DOSAGE FORM
     Route: 065
  55. WELLBUTRIN XL [Suspect]
     Active Substance: BUPROPION HYDROCHLORIDE
     Dosage: 300 MILLIGRAM, QD
  56. WELLBUTRIN XL [Suspect]
     Active Substance: BUPROPION HYDROCHLORIDE
     Dosage: 300 MILLIGRAM, QD
  57. WELLBUTRIN XL [Suspect]
     Active Substance: BUPROPION HYDROCHLORIDE
     Dosage: UNK, QD
     Route: 065
  58. WELLBUTRIN XL [Suspect]
     Active Substance: BUPROPION HYDROCHLORIDE
     Dosage: 300 MILLIGRAM, QD
     Route: 065

REACTIONS (2)
  - Maternal exposure during pregnancy [Unknown]
  - Abortion spontaneous [Unknown]
